FAERS Safety Report 9942291 (Version 1)
Quarter: 2014Q1

REPORT INFORMATION
  Report Type: Report from Study
  Country: US (occurrence: US)
  Receive Date: 20140303
  Receipt Date: 20140303
  Transmission Date: 20141002
  Serious: No
  Sender: FDA-Public Use
  Company Number: US-ABBVIE-13P-163-1042643-00

PATIENT
  Age: 64 Year
  Sex: Female
  Weight: 97.61 kg

DRUGS (5)
  1. UNKNOWN CHOL MEDICATION [Concomitant]
     Indication: HYPERLIPIDAEMIA
  2. HUMIRA PEN [Suspect]
     Indication: RHEUMATOID ARTHRITIS
     Dates: start: 201203
  3. HYDROXYCHLOROQUINE [Concomitant]
     Indication: RHEUMATOID ARTHRITIS
  4. PREDNISONE [Concomitant]
     Indication: RHEUMATOID ARTHRITIS
  5. SYNTHYROID [Concomitant]
     Indication: HYPOTHYROIDISM

REACTIONS (2)
  - Gastroenteritis norovirus [Recovered/Resolved]
  - Headache [Recovered/Resolved]
